FAERS Safety Report 4611741-5 (Version None)
Quarter: 2005Q2

REPORT INFORMATION
  Report Type: 
  Country: None (occurrence: None)
  Receive Date: 20050311
  Receipt Date: 20041214
  Transmission Date: 20051028
  Serious: No
  Sender: FDA-Public Use
  Company Number: 2004-BP-13729BP

PATIENT
  Age: 68 Year
  Sex: Male

DRUGS (12)
  1. SPIRIVA [Suspect]
     Indication: CHRONIC OBSTRUCTIVE PULMONARY DISEASE
     Dosage: 18 MCG (18 MCG), IH
     Route: 055
     Dates: start: 20040801
  2. THEOPHYLLINE [Concomitant]
  3. BACTRIM [Concomitant]
  4. DILTIAZEM [Concomitant]
  5. SINGULAIR (MONTELUKAST) [Concomitant]
  6. MITRAZAPINE (MIRTAZAPINE) [Concomitant]
  7. LIPITOR [Concomitant]
  8. ISOSORBIDE (ISOSORBIDE) [Concomitant]
  9. VITAMIN C (ASCORBIC ACID) [Concomitant]
  10. VITAMIN B12 (CYANCOBALAMIN) [Concomitant]
  11. SAW PALMETTO (SERENOA REPENS) [Concomitant]
  12. DIAZEPAM [Concomitant]

REACTIONS (3)
  - MICTURITION URGENCY [None]
  - SWELLING FACE [None]
  - WEIGHT INCREASED [None]
